FAERS Safety Report 7110387-7 (Version None)
Quarter: 2010Q4

REPORT INFORMATION
  Report Type: 
  Country: None (occurrence: None)
  Receive Date: 20101117
  Receipt Date: 20101117
  Transmission Date: 20110411
  Serious: Yes (Other)
  Sender: FDA-Public Use
  Company Number: None

PATIENT
  Sex: Male
  Weight: 102.0593 kg

DRUGS (2)
  1. ASPIRIN [Suspect]
     Indication: PROPHYLAXIS
     Dosage: 81 MG 1/DAY ORAL 047
  2. ASPIRIN [Suspect]
     Dosage: 81 MG 1/DAY ORAL 047
     Route: 048

REACTIONS (9)
  - DRUG INTOLERANCE [None]
  - EPISTAXIS [None]
  - ERYTHEMA [None]
  - JOINT SWELLING [None]
  - PRURITUS [None]
  - SKIN ATROPHY [None]
  - SKIN DISCOLOURATION [None]
  - SKIN EXFOLIATION [None]
  - SKIN FISSURES [None]
